FAERS Safety Report 18494637 (Version 2)
Quarter: 2020Q4

REPORT INFORMATION
  Report Type: Spontaneous
  Country: US (occurrence: US)
  Receive Date: 20201112
  Receipt Date: 20201201
  Transmission Date: 20210114
  Serious: No
  Sender: FDA-Public Use
  Company Number: US-BEH-2020124628

PATIENT
  Sex: Female
  Weight: 54.42 kg

DRUGS (7)
  1. PREDNISONE. [Concomitant]
     Active Substance: PREDNISONE
     Dosage: 20 MILLIGRAM (10MG TAB X 2), QD
  2. DULOXETINE DR [Concomitant]
     Active Substance: DULOXETINE
     Dosage: 2 TABS, QD
     Route: 048
  3. CYMBALTA [Concomitant]
     Active Substance: DULOXETINE HYDROCHLORIDE
     Indication: NEURALGIA
  4. TEGRETOL [Concomitant]
     Active Substance: CARBAMAZEPINE
  5. TIZANIDINE. [Concomitant]
     Active Substance: TIZANIDINE
     Indication: MUSCLE SPASMS
     Dosage: 6 MILLIGRAM, TID
     Route: 048
  6. TIZANIDINE. [Concomitant]
     Active Substance: TIZANIDINE
     Dosage: 4 MILLIGRAM, PRN
     Route: 048
  7. PRIVIGEN [Suspect]
     Active Substance: HUMAN IMMUNOGLOBULIN G
     Indication: CHRONIC INFLAMMATORY DEMYELINATING POLYRADICULONEUROPATHY
     Dosage: 25 GRAM, (250ML) FOR 2 DAYS, QOW
     Route: 042
     Dates: start: 202009

REACTIONS (4)
  - Rash [Recovering/Resolving]
  - Wheezing [Unknown]
  - Skin lesion [Unknown]
  - Chest discomfort [Recovered/Resolved]
